FAERS Safety Report 7784422-7 (Version None)
Quarter: 2011Q3

REPORT INFORMATION
  Report Type: 
  Country: None (occurrence: None)
  Receive Date: 20110928
  Receipt Date: 20110921
  Transmission Date: 20111222
  Serious: Yes (Death, Other)
  Sender: FDA-Public Use
  Company Number: US-ABBOTT-11P-163-0851140-00

PATIENT
  Sex: Female
  Weight: 54.934 kg

DRUGS (3)
  1. MEPROBAMATE [Suspect]
     Indication: PRODUCT USED FOR UNKNOWN INDICATION
  2. OXYMORPHONE [Suspect]
     Indication: PRODUCT USED FOR UNKNOWN INDICATION
  3. VICODIN [Suspect]
     Indication: PRODUCT USED FOR UNKNOWN INDICATION

REACTIONS (10)
  - TOXICITY TO VARIOUS AGENTS [None]
  - ASPIRATION [None]
  - SCAR [None]
  - ECCHYMOSIS [None]
  - EYE SWELLING [None]
  - CONTUSION [None]
  - INCORRECT ROUTE OF DRUG ADMINISTRATION [None]
  - EXCORIATION [None]
  - PULMONARY OEDEMA [None]
  - VOMITING [None]
